FAERS Safety Report 6825878-3 (Version None)
Quarter: 2010Q3

REPORT INFORMATION
  Report Type: 
  Country: None (occurrence: None)
  Receive Date: 20100707
  Receipt Date: 20100707
  Transmission Date: 20110219
  Serious: Yes (Life-Threatening)
  Sender: FDA-Public Use
  Company Number: None

PATIENT
  Sex: Female

DRUGS (2)
  1. ARIMIDEX [Suspect]
     Indication: BREAST CANCER
     Dates: start: 20100520
  2. ARTHROPOD BITE [Suspect]

REACTIONS (4)
  - ARTHROPOD BITE [None]
  - PRURITUS [None]
  - PYREXIA [None]
  - RASH [None]
